FAERS Safety Report 6618452-5 (Version None)
Quarter: 2010Q1

REPORT INFORMATION
  Report Type: 
  Country: None (occurrence: None)
  Receive Date: 20100308
  Receipt Date: 20100226
  Transmission Date: 20100710
  Serious: Yes (Other)
  Sender: FDA-Public Use
  Company Number: JP-ELI_LILLY_AND_COMPANY-JP201002006407

PATIENT
  Age: 63 Year
  Sex: Male

DRUGS (3)
  1. GEMZAR [Suspect]
     Indication: TRANSITIONAL CELL CARCINOMA
     Dosage: 1000 MG/M2, OTHER
     Route: 042
     Dates: start: 20081008
  2. CARBOPLATIN [Interacting]
     Indication: TRANSITIONAL CELL CARCINOMA
     Dosage: 125 MG, OTHER
     Route: 042
     Dates: start: 20081009, end: 20080101
  3. PACLITAXEL [Concomitant]
     Indication: TRANSITIONAL CELL CARCINOMA
     Dosage: 110 MG/M2, OTHER
     Route: 042
     Dates: start: 20081203

REACTIONS (5)
  - DRUG INTERACTION [None]
  - METASTASES TO LIVER [None]
  - NEUTROPENIA [None]
  - THROMBOCYTOPENIA [None]
  - WHITE BLOOD CELL COUNT DECREASED [None]
